FAERS Safety Report 20628002 (Version 1)
Quarter: 2022Q1

REPORT INFORMATION
  Report Type: Spontaneous
  Country: US (occurrence: None)
  Receive Date: 20220323
  Receipt Date: 20220323
  Transmission Date: 20220423
  Serious: Yes (Other)
  Sender: FDA-Public Use
  Company Number: None

PATIENT
  Age: 17 Year
  Sex: Male
  Weight: 127.6 kg

DRUGS (6)
  1. EVUSHELD [Suspect]
     Active Substance: CILGAVIMAB\TIXAGEVIMAB
     Indication: COVID-19 prophylaxis
     Route: 030
     Dates: start: 20220311, end: 20220311
  2. DASATINIB [Concomitant]
     Active Substance: DASATINIB
  3. SULFAMETHOXAZOLE\TRIMETHOPRIM [Concomitant]
     Active Substance: SULFAMETHOXAZOLE\TRIMETHOPRIM
  4. LORATADINE [Concomitant]
     Active Substance: LORATADINE
  5. FLUCONAZOLE [Concomitant]
     Active Substance: FLUCONAZOLE
  6. ACYCLOVIR [Concomitant]
     Active Substance: ACYCLOVIR

REACTIONS (4)
  - Lymphadenopathy [None]
  - Rash [None]
  - Eye swelling [None]
  - Drug hypersensitivity [None]

NARRATIVE: CASE EVENT DATE: 20220316
